FAERS Safety Report 13302737 (Version 2)
Quarter: 2017Q3

REPORT INFORMATION
  Report Type: Spontaneous
  Country: US (occurrence: US)
  Receive Date: 20170307
  Receipt Date: 20170928
  Transmission Date: 20171127
  Serious: Yes (Other)
  Sender: FDA-Public Use
  Company Number: US-SA-2017SA036549

PATIENT
  Age: 40 Year
  Sex: Female

DRUGS (1)
  1. AUBAGIO [Suspect]
     Active Substance: TERIFLUNOMIDE
     Indication: MULTIPLE SCLEROSIS
     Route: 048

REACTIONS (5)
  - Alopecia [Recovered/Resolved]
  - Anaemia [Unknown]
  - Onychomadesis [Recovered/Resolved]
  - Stevens-Johnson syndrome [Unknown]
  - Skin exfoliation [Recovered/Resolved]
